FAERS Safety Report 20020010 (Version 2)
Quarter: 2022Q1

REPORT INFORMATION
  Report Type: Report from Study
  Country: BR (occurrence: None)
  Receive Date: 20211101
  Receipt Date: 20220121
  Transmission Date: 20220423
  Serious: Yes (Other)
  Sender: FDA-Public Use
  Company Number: 2021A776093

PATIENT
  Sex: Male

DRUGS (2)
  1. SYMBICORT [Suspect]
     Active Substance: BUDESONIDE\FORMOTEROL FUMARATE DIHYDRATE
     Dosage: 1 PUFF
     Route: 055
  2. SYMBICORT [Suspect]
     Active Substance: BUDESONIDE\FORMOTEROL FUMARATE DIHYDRATE
     Dosage: 2 PUFFS IN THE MORNING AND 1 PUFF IN THE EVENING
     Route: 055

REACTIONS (6)
  - Lung disorder [Recovering/Resolving]
  - COVID-19 [Unknown]
  - Fatigue [Unknown]
  - Pallor [Unknown]
  - Oral mucosal discolouration [Unknown]
  - Off label use [Not Recovered/Not Resolved]
